FAERS Safety Report 21236880 (Version 1)
Quarter: 2022Q3

REPORT INFORMATION
  Report Type: Other
  Country: JP (occurrence: JP)
  Receive Date: 20220822
  Receipt Date: 20220822
  Transmission Date: 20221026
  Serious: Yes (Other)
  Sender: FDA-Public Use
  Company Number: JP-CHUGAI-2022013713

PATIENT
  Age: 77 Year
  Sex: Male
  Weight: 64.5 kg

DRUGS (6)
  1. ATEZOLIZUMAB [Suspect]
     Active Substance: ATEZOLIZUMAB
     Indication: Small cell lung cancer extensive stage
     Dosage: 1200 MILLIGRAM
     Route: 041
     Dates: start: 20211101
  2. ATEZOLIZUMAB [Suspect]
     Active Substance: ATEZOLIZUMAB
     Dosage: 1200 MILLIGRAM
     Route: 041
     Dates: start: 20220222, end: 20220223
  3. CARBOPLATIN [Concomitant]
     Active Substance: CARBOPLATIN
     Indication: Small cell lung cancer extensive stage
     Dosage: 410 MILLIGRAM
     Route: 041
     Dates: start: 20211101
  4. CARBOPLATIN [Concomitant]
     Active Substance: CARBOPLATIN
     Dosage: 350 MILLIGRAM
     Route: 041
     Dates: start: 20220222
  5. ETOPOSIDE [Concomitant]
     Active Substance: ETOPOSIDE
     Indication: Small cell lung cancer extensive stage
     Dosage: 160 MILLIGRAM
     Route: 041
     Dates: start: 20211101
  6. ETOPOSIDE [Concomitant]
     Active Substance: ETOPOSIDE
     Dosage: 137 MILLIGRAM
     Route: 041
     Dates: start: 20220323, end: 20220325

REACTIONS (3)
  - Renal impairment [Not Recovered/Not Resolved]
  - Transient ischaemic attack [Recovering/Resolving]
  - Dermatitis [Recovered/Resolved]

NARRATIVE: CASE EVENT DATE: 20211225
